FAERS Safety Report 15727895 (Version 5)
Quarter: 2019Q1

REPORT INFORMATION
  Report Type: Spontaneous
  Country: US (occurrence: US)
  Receive Date: 20181217
  Receipt Date: 20190318
  Transmission Date: 20190417
  Serious: No
  Sender: FDA-Public Use
  Company Number: US-PFIZER INC-2018512240

PATIENT
  Age: 78 Year
  Sex: Male
  Weight: 59 kg

DRUGS (2)
  1. CAVERJECT IMPULSE [Suspect]
     Active Substance: ALPROSTADIL
     Dosage: 20 UG, UNK
  2. CAVERJECT IMPULSE [Suspect]
     Active Substance: ALPROSTADIL
     Indication: ERECTILE DYSFUNCTION
     Dosage: 10 UG, UNK
     Dates: start: 20181203

REACTIONS (1)
  - Drug ineffective [Unknown]
